FAERS Safety Report 22397093 (Version 5)
Quarter: 2024Q1

REPORT INFORMATION
  Report Type: Other
  Country: CA (occurrence: CA)
  Receive Date: 20230602
  Receipt Date: 20240214
  Transmission Date: 20240409
  Serious: Yes (Other)
  Sender: FDA-Public Use
  Company Number: CA-TOLMAR, INC.-23CA040912

PATIENT
  Age: 73 Year
  Sex: Male

DRUGS (9)
  1. ELIGARD [Suspect]
     Active Substance: LEUPROLIDE ACETATE
     Indication: Prostate cancer
     Dosage: 22.5 MILLIGRAM, Q 3 MONTH
     Route: 058
     Dates: start: 20230216
  2. ELIGARD [Suspect]
     Active Substance: LEUPROLIDE ACETATE
     Dosage: 22.5 MILLIGRAM, Q 3 MONTH
     Route: 058
     Dates: start: 20230513
  3. ELIGARD [Suspect]
     Active Substance: LEUPROLIDE ACETATE
     Dosage: 22.5 MILLIGRAM, Q 3 MONTH
     Route: 058
     Dates: start: 20230804
  4. ELIGARD [Suspect]
     Active Substance: LEUPROLIDE ACETATE
     Dosage: 22.5 MILLIGRAM, Q 3 MONTH
     Route: 058
     Dates: start: 20240119
  5. RADIATION THERAPY [Suspect]
     Active Substance: RADIATION THERAPY
     Indication: Prostate cancer
     Dosage: FOR 5 TREATMENTS
     Dates: start: 20230512
  6. RADIATION THERAPY [Suspect]
     Active Substance: RADIATION THERAPY
     Dosage: FOR 5 TREATMENTS
     Dates: start: 20230515
  7. RADIATION THERAPY [Suspect]
     Active Substance: RADIATION THERAPY
     Dosage: FOR 5 TREATMENTS
     Dates: start: 20230517
  8. RADIATION THERAPY [Suspect]
     Active Substance: RADIATION THERAPY
     Dosage: FOR 5 TREATMENTS
     Dates: start: 20230519
  9. RADIATION THERAPY [Suspect]
     Active Substance: RADIATION THERAPY
     Dosage: FOR 5 TREATMENTS
     Dates: start: 20230523

REACTIONS (8)
  - Prostate cancer [Unknown]
  - Defaecation urgency [Recovering/Resolving]
  - Asthenia [Unknown]
  - Dysuria [Recovering/Resolving]
  - Fatigue [Recovering/Resolving]
  - Injection site pain [Recovered/Resolved]
  - Hot flush [Unknown]
  - Injection site mass [Not Recovered/Not Resolved]

NARRATIVE: CASE EVENT DATE: 20230301
